FAERS Safety Report 9586331 (Version 2)
Quarter: 2013Q4

REPORT INFORMATION
  Report Type: Report from Study
  Country: CA (occurrence: CA)
  Receive Date: 20131003
  Receipt Date: 20131106
  Transmission Date: 20140711
  Serious: Yes (Death)
  Sender: FDA-Public Use
  Company Number: PHHY2013CA109597

PATIENT
  Age: 67 Year
  Sex: Male

DRUGS (2)
  1. SANDOSTATIN LAR [Suspect]
     Indication: HEPATIC CANCER METASTATIC
     Dosage: 20 MG, EVERY FOUR WEEKS
     Route: 030
     Dates: start: 201203, end: 2012
  2. SANDOSTATIN LAR [Suspect]
     Indication: CARCINOID SYNDROME

REACTIONS (2)
  - Pulmonary embolism [Fatal]
  - Respiratory failure [Fatal]
